FAERS Safety Report 18430156 (Version 1)
Quarter: 2020Q4

REPORT INFORMATION
  Report Type: Spontaneous
  Country: ES (occurrence: ES)
  Receive Date: 20201027
  Receipt Date: 20201027
  Transmission Date: 20210114
  Serious: Yes (Other)
  Sender: FDA-Public Use
  Company Number: ES-AUROBINDO-AUR-APL-2020-054045

PATIENT
  Age: 17 Year
  Sex: Female

DRUGS (4)
  1. MEMANTINE. [Suspect]
     Active Substance: MEMANTINE
     Indication: NYSTAGMUS
  2. MEMANTINE. [Suspect]
     Active Substance: MEMANTINE
     Indication: OSCILLOPSIA
     Route: 065
  3. CLONAZEPAM. [Suspect]
     Active Substance: CLONAZEPAM
     Indication: OSCILLOPSIA
  4. CLONAZEPAM. [Suspect]
     Active Substance: CLONAZEPAM
     Indication: NYSTAGMUS
     Route: 065

REACTIONS (1)
  - Blindness [Unknown]
